FAERS Safety Report 9490531 (Version 1)
Quarter: 2013Q3

REPORT INFORMATION
  Report Type: Spontaneous
  Country: US (occurrence: None)
  Receive Date: 20130827
  Receipt Date: 20130827
  Transmission Date: 20140515
  Serious: Yes (Life-Threatening, Hospitalization, Disabling)
  Sender: FDA-Public Use
  Company Number: None

PATIENT
  Age: 74 Year
  Sex: Male

DRUGS (11)
  1. XARELTO(RIVAROXABAN) [Suspect]
     Indication: PULMONARY THROMBOSIS
     Dosage: 15 MG 20 XARELTO 1 TABLET EVERY 12 HOURS BY MOUTH
     Route: 048
     Dates: start: 20130611, end: 20130620
  2. MULTAQ [Concomitant]
  3. METOPROLOL [Concomitant]
  4. BACTRIM DS [Concomitant]
  5. ASPIRIN [Concomitant]
  6. FOLIC ACID [Concomitant]
  7. VIT B-12 [Concomitant]
  8. FISH OIL [Concomitant]
  9. VITAMIN D3 [Concomitant]
  10. MENS MULTI VITAMIN [Concomitant]
  11. VITAMIN C [Concomitant]

REACTIONS (10)
  - Loss of consciousness [None]
  - Pulse absent [None]
  - Body temperature decreased [None]
  - Hypotension [None]
  - Renal failure acute [None]
  - Hepatic failure [None]
  - Metabolic acidosis [None]
  - Respiratory failure [None]
  - Dysphagia [None]
  - Dyspnoea [None]
